FAERS Safety Report 7635185-7 (Version None)
Quarter: 2011Q3

REPORT INFORMATION
  Report Type: 
  Country: None (occurrence: None)
  Receive Date: 20110726
  Receipt Date: 20110725
  Transmission Date: 20111222
  Serious: Yes (Life-Threatening, Hospitalization)
  Sender: FDA-Public Use
  Company Number: CA-BAYER-2011-064402

PATIENT
  Age: 12 Year
  Sex: Female
  Weight: 72 kg

DRUGS (1)
  1. YAZ [Suspect]
     Dosage: 1 DF, QD
     Route: 048

REACTIONS (7)
  - NAUSEA [None]
  - PHOTOPHOBIA [None]
  - URTICARIA [None]
  - PARAESTHESIA [None]
  - PAIN [None]
  - PHONOPHOBIA [None]
  - HEADACHE [None]
